FAERS Safety Report 12642820 (Version 1)
Quarter: 2016Q3

REPORT INFORMATION
  Report Type: Spontaneous
  Country: US (occurrence: US)
  Receive Date: 20160811
  Receipt Date: 20160811
  Transmission Date: 20161109
  Serious: Yes (Other)
  Sender: FDA-Public Use
  Company Number: US-ALEMBIC PHARMACUETICALS LIMITED-2016SCAL000652

PATIENT

DRUGS (1)
  1. LITHIUM CARBONATE. [Suspect]
     Active Substance: LITHIUM CARBONATE
     Indication: CLUSTER HEADACHE
     Dosage: UNK

REACTIONS (3)
  - Thyroid disorder [Unknown]
  - Therapeutic response unexpected [Unknown]
  - Off label use [Unknown]
